FAERS Safety Report 20486490 (Version 3)
Quarter: 2022Q3

REPORT INFORMATION
  Report Type: Report from Study
  Country: NL (occurrence: None)
  Receive Date: 20220217
  Receipt Date: 20220721
  Transmission Date: 20221027
  Serious: Yes (Hospitalization, Other)
  Sender: FDA-Public Use
  Company Number: NL-Eisai Medical Research-EC-2022-108573

PATIENT
  Age: 69 Year
  Sex: Male

DRUGS (4)
  1. LENVATINIB [Suspect]
     Active Substance: LENVATINIB
     Indication: Mesothelioma
     Route: 048
     Dates: start: 20211025, end: 20220206
  2. LENVATINIB [Suspect]
     Active Substance: LENVATINIB
     Route: 048
     Dates: start: 20220210
  3. PEMBROLIZUMAB [Suspect]
     Active Substance: PEMBROLIZUMAB
     Indication: Mesothelioma
     Route: 042
     Dates: start: 20211025, end: 20220118
  4. PEMBROLIZUMAB [Suspect]
     Active Substance: PEMBROLIZUMAB
     Dates: start: 20220210, end: 2022

REACTIONS (3)
  - Constipation [Recovered/Resolved]
  - Hyponatraemia [Recovered/Resolved]
  - Radiculopathy [Recovered/Resolved]

NARRATIVE: CASE EVENT DATE: 20220207
